FAERS Safety Report 15631772 (Version 1)
Quarter: 2018Q4

REPORT INFORMATION
  Report Type: Spontaneous
  Country: RU (occurrence: RU)
  Receive Date: 20181119
  Receipt Date: 20181119
  Transmission Date: 20190205
  Serious: Yes (Other)
  Sender: FDA-Public Use
  Company Number: RU-BRISTOL-MYERS SQUIBB COMPANY-BMS-2018-107714

PATIENT

DRUGS (1)
  1. NIVOLUMAB [Suspect]
     Active Substance: NIVOLUMAB
     Indication: HODGKIN^S DISEASE
     Dosage: 1 MG/KG, Q2WK
     Route: 042

REACTIONS (4)
  - Prescribed underdose [Unknown]
  - Malignant neoplasm progression [Unknown]
  - Hypophysitis [Recovered/Resolved]
  - Meningitis aseptic [Recovered/Resolved]
